FAERS Safety Report 5017099-4 (Version None)
Quarter: 2006Q2

REPORT INFORMATION
  Report Type: 
  Country: None (occurrence: None)
  Receive Date: 20060526
  Receipt Date: 20060517
  Transmission Date: 20061013
  Serious: Yes (Other)
  Sender: FDA-Public Use
  Company Number: A-US2006-12341

PATIENT
  Age: 43 Year
  Sex: Male

DRUGS (3)
  1. TRACLEER [Suspect]
     Indication: SKIN ULCER
     Dosage: 62.5 + 125 MG, BID, ORAL - SEE IMAGE
     Route: 048
     Dates: start: 20010101
  2. SILDENAFIL CITRATE [Suspect]
     Indication: SKIN ULCER
  3. LOVENOX [Concomitant]

REACTIONS (6)
  - DIZZINESS POSTURAL [None]
  - DRUG INTERACTION [None]
  - ORTHOSTATIC HYPOTENSION [None]
  - PALPITATIONS [None]
  - PNEUMONIA [None]
  - TACHYCARDIA [None]
